FAERS Safety Report 6925484-6 (Version None)
Quarter: 2010Q3

REPORT INFORMATION
  Report Type: 
  Country: None (occurrence: None)
  Receive Date: 20100816
  Receipt Date: 20100805
  Transmission Date: 20110219
  Serious: Yes (Death)
  Sender: FDA-Public Use
  Company Number: PT-ROCHE-717013

PATIENT
  Sex: Male
  Weight: 78 kg

DRUGS (3)
  1. AVASTIN [Suspect]
     Dosage: ROUTE REPORTED AS: EV
     Route: 042
     Dates: start: 20091130, end: 20100503
  2. PACLITAXEL [Concomitant]
     Dosage: ROUTE REPORTED AS: EV
     Route: 042
     Dates: start: 20091130, end: 20100503
  3. CARBOPLATIN [Concomitant]
     Dosage: DOSE REPORTED AS: AUC 6, ROUTE REPORTED AS: EV
     Route: 042
     Dates: start: 20091130, end: 20100503

REACTIONS (2)
  - DEATH [None]
  - DISEASE PROGRESSION [None]
